FAERS Safety Report 13662292 (Version 1)
Quarter: 2017Q2

REPORT INFORMATION
  Report Type: Report from Study
  Country: US (occurrence: US)
  Receive Date: 20170617
  Receipt Date: 20170617
  Transmission Date: 20170830
  Serious: Yes (Death)
  Sender: FDA-Public Use
  Company Number: US-TORRENT-00003101

PATIENT
  Age: 17 Year
  Sex: Female

DRUGS (8)
  1. MINOCYCLINE [Suspect]
     Active Substance: MINOCYCLINE\MINOCYCLINE HYDROCHLORIDE
  2. DILTIAZEM. [Suspect]
     Active Substance: DILTIAZEM
  3. IRBESARTAN. [Suspect]
     Active Substance: IRBESARTAN
  4. IBUPROFEN. [Suspect]
     Active Substance: IBUPROFEN
  5. ZOLPIDEM [Suspect]
     Active Substance: ZOLPIDEM\ZOLPIDEM TARTRATE
  6. METOPROLOL. [Suspect]
     Active Substance: METOPROLOL
  7. FUROSEMIDE. [Suspect]
     Active Substance: FUROSEMIDE
  8. HYDROCHLOROTHIAZIDE. [Suspect]
     Active Substance: HYDROCHLOROTHIAZIDE

REACTIONS (3)
  - Toxicity to various agents [Fatal]
  - Completed suicide [Fatal]
  - Intentional overdose [None]
